FAERS Safety Report 5598603-4 (Version None)
Quarter: 2008Q1

REPORT INFORMATION
  Report Type: 
  Country: None (occurrence: None)
  Receive Date: 20080122
  Receipt Date: 20070221
  Transmission Date: 20080703
  Serious: No
  Sender: FDA-Public Use
  Company Number: US-BAUSCH-2007BL000228

PATIENT
  Age: 20 Year
  Sex: Male

DRUGS (10)
  1. DESMOPRESSIN ACETATE [Suspect]
     Indication: DIABETES INSIPIDUS
     Route: 045
     Dates: start: 20050101
  2. DESMOPRESSIN ACETATE [Suspect]
     Route: 045
     Dates: start: 20050101
  3. DESMOPRESSIN ACETATE [Suspect]
     Route: 045
     Dates: start: 20050101
  4. DESMOPRESSIN ACETATE [Suspect]
     Route: 045
     Dates: start: 20050101
  5. VALIUM /NET/ [Concomitant]
  6. PHENOBARBITAL TAB [Concomitant]
  7. CLARITIN /USA/ [Concomitant]
  8. TYLENOL /USA/ [Concomitant]
  9. MILK OF MAGNESIA [Concomitant]
  10. FLONASE [Concomitant]

REACTIONS (5)
  - BLOOD SODIUM INCREASED [None]
  - DRUG INEFFECTIVE [None]
  - MEDICATION ERROR [None]
  - URINE OUTPUT DECREASED [None]
  - URINE OUTPUT INCREASED [None]
